FAERS Safety Report 10854250 (Version 2)
Quarter: 2016Q1

REPORT INFORMATION
  Report Type: Spontaneous
  Country: US (occurrence: US)
  Receive Date: 20150223
  Receipt Date: 20160117
  Transmission Date: 20160525
  Serious: Yes (Disabling)
  Sender: FDA-Public Use
  Company Number: US-CELGENEUS-163-21880-14062138

PATIENT
  Age: 44 Year
  Sex: Female

DRUGS (6)
  1. REVLIMID [Suspect]
     Active Substance: LENALIDOMIDE
     Route: 048
     Dates: start: 201305
  2. REVLIMID [Suspect]
     Active Substance: LENALIDOMIDE
     Route: 048
     Dates: start: 201509
  3. DEXAMETHASONE. [Concomitant]
     Active Substance: DEXAMETHASONE
     Indication: PLASMA CELL MYELOMA
     Route: 065
     Dates: start: 201209, end: 201212
  4. VELCADE [Concomitant]
     Active Substance: BORTEZOMIB
     Indication: PLASMA CELL MYELOMA
     Route: 058
     Dates: start: 201209, end: 201212
  5. REVLIMID [Suspect]
     Active Substance: LENALIDOMIDE
     Indication: PLASMA CELL MYELOMA
     Route: 048
     Dates: start: 201209, end: 201212
  6. REVLIMID [Suspect]
     Active Substance: LENALIDOMIDE
     Dosage: 2.5-5MG
     Route: 048
     Dates: start: 201308, end: 201411

REACTIONS (8)
  - Intervertebral disc protrusion [Unknown]
  - Haemoglobin decreased [Unknown]
  - Fatigue [Not Recovered/Not Resolved]
  - Bone pain [Unknown]
  - Neuropathy peripheral [Not Recovered/Not Resolved]
  - Muscular weakness [Unknown]
  - Alopecia totalis [Unknown]
  - Memory impairment [Unknown]

NARRATIVE: CASE EVENT DATE: 20120930
